FAERS Safety Report 12301247 (Version 1)
Quarter: 2016Q2

REPORT INFORMATION
  Report Type: Spontaneous
  Country: US (occurrence: US)
  Receive Date: 20160425
  Receipt Date: 20160425
  Transmission Date: 20160815
  Serious: Yes (Other)
  Sender: FDA-Public Use
  Company Number: US-AKORN PHARMACEUTICALS-2016AKN00204

PATIENT
  Age: 51 Year
  Sex: Female

DRUGS (2)
  1. MYORISAN [Suspect]
     Active Substance: ISOTRETINOIN
     Indication: ROSACEA
     Dosage: 40 MG, UNK
     Route: 048
     Dates: start: 20160105, end: 20160326
  2. MYORISAN [Suspect]
     Active Substance: ISOTRETINOIN
     Indication: ROSACEA
     Dosage: 30 MG, 1X/DAY
     Dates: start: 20160303, end: 20160326

REACTIONS (4)
  - Headache [Recovering/Resolving]
  - Visual impairment [Recovering/Resolving]
  - Panic attack [Recovering/Resolving]
  - Product use issue [Recovered/Resolved]

NARRATIVE: CASE EVENT DATE: 2016
